FAERS Safety Report 6811917-2 (Version None)
Quarter: 2010Q3

REPORT INFORMATION
  Report Type: 
  Country: None (occurrence: None)
  Receive Date: 20100701
  Receipt Date: 20100622
  Transmission Date: 20110219
  Serious: Yes (Other)
  Sender: FDA-Public Use
  Company Number: US-JNJFOC-20100401151

PATIENT
  Sex: Female

DRUGS (4)
  1. ULTRAM [Suspect]
     Indication: PAIN
     Route: 065
  2. TYLENOL [Suspect]
     Route: 065
  3. TYLENOL [Suspect]
     Indication: PAIN
     Route: 065
  4. MAALOX MS TOTAL STOMACH RELIEF [Suspect]
     Indication: ABDOMINAL DISCOMFORT
     Route: 048

REACTIONS (3)
  - CELLULITIS [None]
  - FAECES DISCOLOURED [None]
  - URTICARIA [None]
